FAERS Safety Report 7244024-8 (Version None)
Quarter: 2011Q1

REPORT INFORMATION
  Report Type: 
  Country: None (occurrence: None)
  Receive Date: 20110125
  Receipt Date: 20110111
  Transmission Date: 20110831
  Serious: Yes (Other)
  Sender: FDA-Public Use
  Company Number: FR-MERCK-1101FRA00047

PATIENT
  Age: 71 Year
  Sex: Male

DRUGS (4)
  1. CARTEOLOL HYDROCHLORIDE [Concomitant]
     Route: 065
  2. ISRADIPINE [Concomitant]
     Route: 065
     Dates: start: 20070701
  3. ZETIA [Suspect]
     Indication: CORONARY ARTERY OCCLUSION
     Route: 048
     Dates: start: 20070101, end: 20100501
  4. ASPIRIN LYSINE [Concomitant]
     Route: 065
     Dates: start: 20061001

REACTIONS (1)
  - TENDONITIS [None]
